FAERS Safety Report 6305162-7 (Version None)
Quarter: 2009Q3

REPORT INFORMATION
  Report Type: 
  Country: None (occurrence: None)
  Receive Date: 20090811
  Receipt Date: 20090728
  Transmission Date: 20100115
  Serious: Yes (Hospitalization, Other)
  Sender: FDA-Public Use
  Company Number: US-PFIZER INC-2009227762

PATIENT
  Sex: Female

DRUGS (9)
  1. PROCARDIA [Suspect]
  2. CODEINE POLYSULFONATE [Suspect]
  3. CEFTIN [Suspect]
  4. IMITREX [Suspect]
     Indication: HEADACHE
  5. CIPROFLOXACIN [Suspect]
  6. BACTRIM [Suspect]
  7. PROZAC [Concomitant]
     Dosage: UNK
  8. ZYPREXA [Concomitant]
  9. MIDRIN [Concomitant]

REACTIONS (18)
  - BLOOD POTASSIUM DECREASED [None]
  - CARDIAC FAILURE CONGESTIVE [None]
  - CHEST PAIN [None]
  - DRUG INEFFECTIVE [None]
  - FEELING COLD [None]
  - FIBROCYSTIC BREAST DISEASE [None]
  - FLUID RETENTION [None]
  - HYPERSENSITIVITY [None]
  - HYPERTENSION [None]
  - HYSTERECTOMY [None]
  - MALAISE [None]
  - MENISCUS LESION [None]
  - MUSCLE SPASMS [None]
  - RASH [None]
  - SINUS CONGESTION [None]
  - SURGERY [None]
  - SWELLING [None]
  - URINARY TRACT INFECTION [None]
